FAERS Safety Report 14767996 (Version 2)
Quarter: 2018Q2

REPORT INFORMATION
  Report Type: Report from Study
  Country: AT (occurrence: AT)
  Receive Date: 20180417
  Receipt Date: 20180424
  Transmission Date: 20180711
  Serious: Yes (Other)
  Sender: FDA-Public Use
  Company Number: AT-ASTRAZENECA-2018SE46569

PATIENT
  Age: 20660 Day
  Sex: Male
  Weight: 114 kg

DRUGS (1)
  1. DURVALUMAB. [Suspect]
     Active Substance: DURVALUMAB
     Indication: NON-SMALL CELL LUNG CANCER
     Route: 042
     Dates: start: 20180118, end: 20180306

REACTIONS (1)
  - Radiation pneumonitis [Recovering/Resolving]

NARRATIVE: CASE EVENT DATE: 20180303
